FAERS Safety Report 7472832-7 (Version None)
Quarter: 2011Q2

REPORT INFORMATION
  Report Type: 
  Country: None (occurrence: None)
  Receive Date: 20110503
  Receipt Date: 20110420
  Transmission Date: 20111010
  Serious: Yes (Hospitalization)
  Sender: FDA-Public Use
  Company Number: 2010SP009187

PATIENT
  Age: 22 Year
  Sex: Female
  Weight: 108.8633 kg

DRUGS (6)
  1. NUVARING [Suspect]
     Indication: CONTRACEPTION
     Dosage: 1 DF;Q3W;VAG
     Route: 067
     Dates: start: 20080715, end: 20090701
  2. KETOROLAC TROMETHAMINE [Concomitant]
  3. GAVISCON [Concomitant]
  4. CLOBETASOL PROPIONATE [Concomitant]
  5. FLUCONAZOLE [Concomitant]
  6. AZITHROMYCIN [Concomitant]

REACTIONS (60)
  - VIRAL UPPER RESPIRATORY TRACT INFECTION [None]
  - VULVOVAGINAL MYCOTIC INFECTION [None]
  - PHARYNGITIS STREPTOCOCCAL [None]
  - GRAND MAL CONVULSION [None]
  - DRUG EXPOSURE BEFORE PREGNANCY [None]
  - MITRAL VALVE INCOMPETENCE [None]
  - SWELLING FACE [None]
  - EAR DISCOMFORT [None]
  - CONDITION AGGRAVATED [None]
  - PREGNANCY [None]
  - NASOPHARYNGITIS [None]
  - NECK PAIN [None]
  - MUSCLE TIGHTNESS [None]
  - VULVOVAGINAL CANDIDIASIS [None]
  - CEREBRAL CALCIFICATION [None]
  - URINE KETONE BODY PRESENT [None]
  - VIITH NERVE PARALYSIS [None]
  - URINARY TRACT INFECTION [None]
  - INTERNATIONAL NORMALISED RATIO DECREASED [None]
  - INTERVERTEBRAL DISC PROTRUSION [None]
  - RHINITIS ALLERGIC [None]
  - TRICUSPID VALVE INCOMPETENCE [None]
  - CEREBROVASCULAR ACCIDENT [None]
  - STRESS [None]
  - HYPERTENSION [None]
  - DIZZINESS [None]
  - GESTATIONAL HYPERTENSION [None]
  - HYPOAESTHESIA [None]
  - ANXIETY [None]
  - MIGRAINE [None]
  - BACK PAIN [None]
  - VAGINITIS BACTERIAL [None]
  - DYSPAREUNIA [None]
  - TOOTHACHE [None]
  - BLOOD URINE PRESENT [None]
  - HYPERCOAGULATION [None]
  - ARTHRALGIA [None]
  - DEPRESSION [None]
  - TENSION HEADACHE [None]
  - BLOOD GLUCOSE INCREASED [None]
  - TRANSVERSE SINUS THROMBOSIS [None]
  - FALL [None]
  - UPPER-AIRWAY COUGH SYNDROME [None]
  - PARAESTHESIA [None]
  - CEREBRAL HAEMORRHAGE [None]
  - GRIEF REACTION [None]
  - VAGINITIS CHLAMYDIAL [None]
  - DISCOMFORT [None]
  - TOOTH INFECTION [None]
  - PROTEIN URINE PRESENT [None]
  - VISION BLURRED [None]
  - LOSS OF CONSCIOUSNESS [None]
  - SINUSITIS [None]
  - RHINITIS [None]
  - ABNORMAL SENSATION IN EYE [None]
  - DRUG INEFFECTIVE [None]
  - FACIAL PAIN [None]
  - GESTATIONAL DIABETES [None]
  - OEDEMA PERIPHERAL [None]
  - STREPTOCOCCUS TEST POSITIVE [None]
